FAERS Safety Report 8758033 (Version 1)
Quarter: 2012Q4

REPORT INFORMATION
  Report Type: 
  Country: GB (occurrence: GB)
  Receive Date: 20120828
  Receipt Date: 20120828
  Transmission Date: 20130627
  Serious: Yes (Other)
  Sender: FDA-Public Use
  Company Number: GB-ELI_LILLY_AND_COMPANY-GB201208006231

PATIENT
  Age: 32 Year
  Sex: Female

DRUGS (7)
  1. FLUOXETINE [Suspect]
     Indication: DEPRESSION
     Dosage: 60 mg, qd
     Dates: start: 20100621, end: 20111004
  2. CHLORPROMAZINE [Concomitant]
     Indication: ANXIETY
     Dosage: 25 mg, qd
     Route: 048
     Dates: start: 20110922
  3. CITALOPRAM [Concomitant]
     Indication: DEPRESSION
     Dosage: 20 mg, qd
     Route: 048
     Dates: start: 20111004
  4. DIHYDROCODEINE [Concomitant]
     Indication: PAIN
     Dosage: 60 mg, qd
     Route: 048
     Dates: start: 20100315
  5. OMEPRAZOLE [Concomitant]
     Indication: DYSPEPSIA
     Dosage: 20 mg, qd
     Route: 048
     Dates: start: 20080919
  6. PROPRANOLOL [Concomitant]
     Indication: ANXIETY
     Dosage: 10 mg, bid
     Route: 048
     Dates: start: 20090505
  7. SEROQUEL [Concomitant]
     Indication: DEPRESSION
     Dosage: 200 mg, bid
     Route: 048
     Dates: start: 20110323, end: 20110910

REACTIONS (2)
  - Pre-eclampsia [Unknown]
  - Exposure during pregnancy [Recovered/Resolved]
